FAERS Safety Report 9279446 (Version 1)
Quarter: 2013Q2

REPORT INFORMATION
  Report Type: Spontaneous
  Country: CA (occurrence: CA)
  Receive Date: 20130508
  Receipt Date: 20130508
  Transmission Date: 20140414
  Serious: Yes (Other)
  Sender: FDA-Public Use
  Company Number: CA-009507513-1304CAN016992

PATIENT
  Age: 47 Year
  Sex: Female
  Weight: 61 kg

DRUGS (3)
  1. ZENHALE [Suspect]
     Indication: ASTHMA
     Dosage: 200/5
     Dates: start: 20121219, end: 20130423
  2. PULMICORT [Concomitant]
     Indication: RHINITIS
     Dosage: UNK
     Route: 045
     Dates: start: 20121203
  3. PREDNISONE [Concomitant]
     Indication: ASTHMA
     Dosage: UNK
     Route: 048
     Dates: start: 20121203, end: 20130121

REACTIONS (3)
  - Hirsutism [Not Recovered/Not Resolved]
  - Cushingoid [Not Recovered/Not Resolved]
  - Dysphonia [Recovered/Resolved]
